FAERS Safety Report 8798023 (Version 1)
Quarter: 2012Q4

REPORT INFORMATION
  Report Type: 
  Country: US (occurrence: US)
  Receive Date: 20120920
  Receipt Date: 20120920
  Transmission Date: 20130627
  Serious: Yes (Hospitalization)
  Sender: FDA-Public Use
  Company Number: US-ELI_LILLY_AND_COMPANY-US201209003119

PATIENT
  Sex: Male

DRUGS (7)
  1. HUMATROPE [Suspect]
     Indication: HYPOPITUITARISM
     Dosage: 0.3 mg, qd
  2. LEVOTHYROXINE [Concomitant]
  3. LIPITOR [Concomitant]
  4. LASIX [Concomitant]
  5. COREG [Concomitant]
  6. TRAVATAN [Concomitant]
  7. COMBIGAN [Concomitant]

REACTIONS (3)
  - Hospitalisation [Unknown]
  - Rehabilitation therapy [Unknown]
  - Drug dose omission [Unknown]
